FAERS Safety Report 7560874-2 (Version None)
Quarter: 2011Q2

REPORT INFORMATION
  Report Type: 
  Country: None (occurrence: None)
  Receive Date: 20110621
  Receipt Date: 20110610
  Transmission Date: 20111010
  Serious: Yes (Hospitalization)
  Sender: FDA-Public Use
  Company Number: DE-ROCHE-784015

PATIENT
  Sex: Male
  Weight: 65.9 kg

DRUGS (2)
  1. BEVACIZUMAB [Suspect]
     Indication: RECTAL CANCER METASTATIC
     Route: 042
     Dates: start: 20110127, end: 20110127
  2. BEVACIZUMAB [Suspect]
     Dosage: REINTRODUCED
     Route: 042

REACTIONS (2)
  - RENAL FAILURE ACUTE [None]
  - SEPSIS [None]
